FAERS Safety Report 7578458-9 (Version None)
Quarter: 2011Q2

REPORT INFORMATION
  Report Type: 
  Country: None (occurrence: None)
  Receive Date: 20110622
  Receipt Date: 20110607
  Transmission Date: 20111010
  Serious: Yes (Other)
  Sender: FDA-Public Use
  Company Number: GB-1185315

PATIENT
  Age: 63 Year
  Sex: Male

DRUGS (1)
  1. TRAVATAN 0.004% OPTHALMIC SOLUTION (TRAVATAN) 1 GTT [Suspect]
     Indication: GLAUCOMA
     Dosage: 1 GTT QD, OPTHALMIC
     Route: 047
     Dates: start: 20100914, end: 20101114

REACTIONS (2)
  - VISUAL ACUITY REDUCED [None]
  - CYSTOID MACULAR OEDEMA [None]
